FAERS Safety Report 5756298-0 (Version None)
Quarter: 2008Q2

REPORT INFORMATION
  Report Type: 
  Country: None (occurrence: None)
  Receive Date: 20080528
  Receipt Date: 20080528
  Transmission Date: 20081010
  Serious: No
  Sender: FDA-Public Use
  Company Number: None

PATIENT
  Age: 12 Year
  Sex: Male
  Weight: 34.927 kg

DRUGS (2)
  1. RISPERDAL [Suspect]
     Indication: BIPOLAR DISORDER
     Dosage: 3-4 YEARS
  2. LITHIUM CARBONATE [Suspect]
     Indication: PSYCHOTIC DISORDER
     Dosage: 300MG X3 TIMES/DAY PO 3-4 YEARS
     Route: 048

REACTIONS (2)
  - TARDIVE DYSKINESIA [None]
  - WITHDRAWAL SYNDROME [None]
